FAERS Safety Report 25601196 (Version 1)
Quarter: 2025Q3

REPORT INFORMATION
  Report Type: Spontaneous
  Country: EU (occurrence: EU)
  Receive Date: 20250724
  Receipt Date: 20250724
  Transmission Date: 20251021
  Serious: Yes (Other)
  Sender: SANDOZ
  Company Number: EU-ORESUND-25OPAJY0673P

PATIENT

DRUGS (1)
  1. METHOTREXATE [Suspect]
     Active Substance: METHOTREXATE
     Indication: Rheumatoid arthritis
     Route: 065

REACTIONS (7)
  - Pneumocystis jirovecii infection [Unknown]
  - Interstitial lung disease [Unknown]
  - Bronchiectasis [Unknown]
  - Pneumonia [Unknown]
  - Productive cough [Unknown]
  - Emphysema [Unknown]
  - Dyspnoea [Unknown]
